FAERS Safety Report 8811928 (Version 1)
Quarter: 2012Q4

REPORT INFORMATION
  Report Type: Spontaneous
  Country: JP (occurrence: None)
  Receive Date: 20120924
  Receipt Date: 20120924
  Transmission Date: 20130627
  Serious: Yes (Hospitalization)
  Sender: FDA-Public Use
  Company Number: 2012P1057115

PATIENT
  Age: 40 Year
  Sex: Female

DRUGS (1)
  1. LIDOCAINE (NO PREF. NAME) [Suspect]
     Indication: NERVE BLOCK
     Route: 008

REACTIONS (7)
  - Paralysis flaccid [None]
  - Dyspnoea [None]
  - Unresponsive to stimuli [None]
  - Blood pressure decreased [None]
  - Oxygen saturation decreased [None]
  - Computerised tomogram head abnormal [None]
  - Wrong technique in drug usage process [None]
